FAERS Safety Report 17401742 (Version 1)
Quarter: 2020Q1

REPORT INFORMATION
  Report Type: Spontaneous
  Country: US (occurrence: US)
  Receive Date: 20200209
  Receipt Date: 20200209
  Transmission Date: 20200409
  Serious: Yes (Other)
  Sender: FDA-Public Use
  Company Number: None

PATIENT
  Age: 77 Year
  Sex: Male
  Weight: 74.25 kg

DRUGS (4)
  1. DICLOFENAC SODIUM 1% GEL [Suspect]
     Active Substance: DICLOFENAC SODIUM
     Indication: ARTHRALGIA
     Dosage: ?          QUANTITY:2 GRAMS;?
     Route: 061
     Dates: start: 20200118, end: 20200201
  2. GABAPENTIN. [Concomitant]
     Active Substance: GABAPENTIN
  3. TYLENOL [Concomitant]
     Active Substance: ACETAMINOPHEN
  4. IBUPROFEN. [Concomitant]
     Active Substance: IBUPROFEN

REACTIONS (2)
  - Deafness bilateral [None]
  - Deafness transitory [None]

NARRATIVE: CASE EVENT DATE: 20200130
